FAERS Safety Report 6581258-X (Version None)
Quarter: 2010Q1

REPORT INFORMATION
  Report Type: 
  Country: None (occurrence: None)
  Receive Date: 20100215
  Receipt Date: 20100208
  Transmission Date: 20100710
  Serious: Yes (Death, Other)
  Sender: FDA-Public Use
  Company Number: IT-TEVA-223718ISR

PATIENT
  Age: 34 Year
  Sex: Female

DRUGS (3)
  1. DOXORUBICIN [Suspect]
  2. ETOPOSIDE [Suspect]
  3. IFOSFAMIDE [Suspect]

REACTIONS (2)
  - ACUTE MYELOID LEUKAEMIA [None]
  - MALIGNANT NEOPLASM PROGRESSION [None]
